FAERS Safety Report 17022114 (Version 1)
Quarter: 2019Q4

REPORT INFORMATION
  Report Type: Spontaneous
  Country: US (occurrence: US)
  Receive Date: 20191008
  Receipt Date: 20191008
  Transmission Date: 20200122
  Serious: No
  Sender: FDA-Public Use
  Company Number: None

PATIENT
  Age: 49 Year
  Sex: Female

DRUGS (2)
  1. METHAZOLAMIDE. [Concomitant]
     Active Substance: METHAZOLAMIDE
  2. MAYZENT [Suspect]
     Active Substance: SIPONIMOD
     Route: 048
     Dates: start: 201908

REACTIONS (1)
  - Tremor [None]

NARRATIVE: CASE EVENT DATE: 20191008
